FAERS Safety Report 4772998-3 (Version None)
Quarter: 2005Q3

REPORT INFORMATION
  Report Type: 
  Country: None (occurrence: None)
  Receive Date: 20050919
  Receipt Date: 20050823
  Transmission Date: 20060218
  Serious: Yes (Hospitalization)
  Sender: FDA-Public Use
  Company Number: PHHO2005IE13202

PATIENT
  Age: 60 Year
  Sex: Female
  Weight: 94 kg

DRUGS (11)
  1. NATEGLINIDE [Suspect]
     Indication: GLUCOSE TOLERANCE IMPAIRED
     Dosage: LEVEL 1
     Dates: start: 20031111
  2. NATEGLINIDE [Suspect]
     Dosage: LEVEL 2
  3. DIOVAN [Suspect]
     Indication: CARDIOVASCULAR DISORDER
     Dosage: LEVEL 1
     Dates: start: 20031111
  4. DIOVAN [Suspect]
     Dosage: LEVEL 2
  5. L-THYROXINE [Concomitant]
  6. DETROL [Concomitant]
  7. ROSUVASTATIN [Concomitant]
  8. OMACOR [Concomitant]
  9. LASIX [Concomitant]
  10. ESOMEPRAZOLE [Concomitant]
  11. ASPIRIN [Concomitant]

REACTIONS (4)
  - ABDOMINAL PAIN [None]
  - DECREASED APPETITE [None]
  - LETHARGY [None]
  - PANCREATITIS [None]
